FAERS Safety Report 24303015 (Version 2)
Quarter: 2024Q3

REPORT INFORMATION
  Report Type: Spontaneous
  Country: US (occurrence: US)
  Receive Date: 20240910
  Receipt Date: 20240921
  Transmission Date: 20241016
  Serious: Yes (Disabling, Other)
  Sender: AMGEN
  Company Number: US-AMGEN-USASP2024179271

PATIENT
  Age: 71 Year
  Sex: Female
  Weight: 114 kg

DRUGS (36)
  1. TEPEZZA [Suspect]
     Active Substance: TEPROTUMUMAB-TRBW
     Indication: Endocrine ophthalmopathy
     Dosage: 10 MILLIGRAM/KILOGRAM, Q3WK, (FIRST INFUSION, ADMINISTRED 1140 MILLIGRAM, 360 MILLIGRAM WASTED)
     Route: 042
     Dates: start: 20200919
  2. TEPEZZA [Suspect]
     Active Substance: TEPROTUMUMAB-TRBW
     Indication: Graves^ disease
     Dosage: 20 MILLIGRAM/KILOGRAM, Q3WK (SECOND INFUSION, ADMINISTRED 2260 MILLIGRAM, 240 MILLIGRAM WASTED)
     Route: 042
     Dates: start: 20201012
  3. TEPEZZA [Suspect]
     Active Substance: TEPROTUMUMAB-TRBW
     Dosage: 20 MILLIGRAM/KILOGRAM, Q3WK (THIRD INFUSION, ADMINISTRED 2200 MILLIGRAM, 300 MILLIGRAM WASTED)
     Route: 042
     Dates: start: 20201102
  4. TEPEZZA [Suspect]
     Active Substance: TEPROTUMUMAB-TRBW
     Dosage: 20 MILLIGRAM/KILOGRAM, Q3WK (FOURTH INFUSION, ADMINISTRED 2180 MILLIGRAM, 320 MILLIGRAM WASTED)
     Route: 042
     Dates: start: 20201123
  5. TEPEZZA [Suspect]
     Active Substance: TEPROTUMUMAB-TRBW
     Dosage: 20 MILLIGRAM/KILOGRAM, Q3WK (FIFTH INFUSION, ADMINISTRED 2180 MILLIGRAM, 320 MILLIGRAM WASTED)
     Route: 042
     Dates: start: 20201216, end: 202012
  6. TEPEZZA [Suspect]
     Active Substance: TEPROTUMUMAB-TRBW
     Dosage: 20 MILLIGRAM/KILOGRAM, Q3WK, (SIXTH INFUSION, ADMINISTRED 2280 MILLIGRAM, 280 MILLIGRAM WASTED)
     Route: 042
     Dates: start: 20210419
  7. TEPEZZA [Suspect]
     Active Substance: TEPROTUMUMAB-TRBW
     Dosage: 20 MILLIGRAM/KILOGRAM, Q3WK, (SEVENTH INFUSION, ADMINISTRED 2240 MILLIGRAM, 260 MILLIGRAM WASTED)
     Route: 042
     Dates: start: 20210510
  8. TEPEZZA [Suspect]
     Active Substance: TEPROTUMUMAB-TRBW
     Dosage: 20 MILLIGRAM/KILOGRAM, Q3WK, (EIGHT INFUSION, ADMINISTRED 2220 MILLIGRAM, 280 MILLIGRAM WASTED)
     Route: 042
     Dates: start: 20210601
  9. PREDNISONE [Suspect]
     Active Substance: PREDNISONE
     Indication: Eye inflammation
     Dosage: 60 MILLIGRAM, QWK
     Route: 048
     Dates: start: 2022
  10. PREDNISONE [Suspect]
     Active Substance: PREDNISONE
     Dosage: 30 MILLIGRAM, QD
     Route: 048
  11. PREDNISONE [Suspect]
     Active Substance: PREDNISONE
     Dosage: 5 MILLIGRAM
     Route: 048
  12. PREDNISONE [Suspect]
     Active Substance: PREDNISONE
     Dosage: 20 MILLIGRAM, TID
     Route: 048
  13. LATANOPROST [Concomitant]
     Active Substance: LATANOPROST
     Dosage: UNK
     Route: 065
  14. IBUPROFEN [Concomitant]
     Active Substance: IBUPROFEN
     Dosage: 800 MILLIGRAM, QD
     Route: 048
  15. IBUPROFEN [Concomitant]
     Active Substance: IBUPROFEN
     Dosage: 600 MILLIGRAM
     Route: 065
  16. MAGNESIUM [Concomitant]
     Active Substance: MAGNESIUM
     Dosage: UNK UNK, QD
     Route: 048
  17. HERBALS\TURMERIC [Concomitant]
     Active Substance: HERBALS\TURMERIC
     Dosage: UNK UNK, QD
     Route: 048
  18. LOSARTAN [Concomitant]
     Active Substance: LOSARTAN\LOSARTAN POTASSIUM
     Dosage: 50 MILLIGRAM, QD
     Route: 048
  19. CALCIUM CITRATE [Concomitant]
     Active Substance: CALCIUM CITRATE
     Dosage: UNK, (FIVE TABLETS PER DAY)
     Route: 048
  20. LEVOTHYROXINE SODIUM [Concomitant]
     Active Substance: LEVOTHYROXINE SODIUM
     Dosage: 175 MICROGRAM, QD
     Route: 048
  21. TIMOLOL MALEATE [Concomitant]
     Active Substance: TIMOLOL MALEATE
     Dosage: UNK, BID
     Route: 065
  22. METHIMAZOLE [Concomitant]
     Active Substance: METHIMAZOLE
     Dosage: 5 MILLIGRAM, (0.5 MILLIGRAM TABLET ONCE A DAY)
     Route: 048
     Dates: start: 20200717
  23. METHIMAZOLE [Concomitant]
     Active Substance: METHIMAZOLE
     Dosage: 10 MILLIGRAM
     Route: 048
  24. SELENIUM [Concomitant]
     Active Substance: SELENIUM
     Dosage: 200 MILLIGRAM, BID
     Route: 065
  25. ARTIFICIAL TEAR [Concomitant]
     Active Substance: LANOLIN\MINERAL OIL\PETROLATUM
  26. AMLODIPINE BESYLATE [Concomitant]
     Active Substance: AMLODIPINE BESYLATE
     Dosage: 5 MILLIGRAM, QD
     Route: 048
     Dates: start: 20200727
  27. HYDROCHLOROTHIAZIDE [Concomitant]
     Active Substance: HYDROCHLOROTHIAZIDE
     Dosage: 12.5 MILLIGRAM, QD
     Route: 048
     Dates: start: 20200717
  28. POLYVINYL ALCOHOL\POVIDONE [Concomitant]
     Active Substance: POLYVINYL ALCOHOL\POVIDONE
     Dosage: UNK, (AS NEEDED 2-3 TIMES DAY)
     Route: 065
  29. METFORMIN [Concomitant]
     Active Substance: METFORMIN HYDROCHLORIDE
     Indication: Glucose tolerance impaired
     Dosage: 500 MILLIGRAM, BID
     Route: 065
  30. WATER [Concomitant]
     Active Substance: WATER
     Dosage: UNK
     Route: 065
  31. OXYCODONE [Concomitant]
     Active Substance: OXYCODONE
     Dosage: 5 MILLIGRAM
     Route: 065
  32. LISINOPRIL [Concomitant]
     Active Substance: LISINOPRIL
     Dosage: 10 MILLIGRAM
     Route: 065
  33. MECLIZINE [Concomitant]
     Active Substance: MECLIZINE HYDROCHLORIDE
     Dosage: 25 MILLIGRAM
     Route: 065
  34. ANCEF [Concomitant]
     Active Substance: CEFAZOLIN SODIUM
     Dosage: 2 GRAM
     Route: 065
  35. LIDOCAINE [Concomitant]
     Active Substance: LIDOCAINE
     Dosage: UNK
     Route: 065
  36. CEPHALEXIN [Concomitant]
     Active Substance: CEPHALEXIN
     Dosage: 500 MILLIGRAM,
     Route: 065

REACTIONS (19)
  - Endocrine ophthalmopathy [Unknown]
  - Graves^ disease [Unknown]
  - Deafness neurosensory [Not Recovered/Not Resolved]
  - Diabetes mellitus [Unknown]
  - Pain [Unknown]
  - Emotional distress [Unknown]
  - Anxiety [Unknown]
  - Impaired quality of life [Unknown]
  - Discomfort [Unknown]
  - Product use complaint [Unknown]
  - Tinnitus [Not Recovered/Not Resolved]
  - Hypertension [Unknown]
  - Osteoarthritis [Unknown]
  - Dizziness [Unknown]
  - Menopause [Unknown]
  - Diarrhoea [Unknown]
  - Drug ineffective [Unknown]
  - Muscle spasms [Unknown]
  - Dry skin [Unknown]

NARRATIVE: CASE EVENT DATE: 20200101
